FAERS Safety Report 17743005 (Version 3)
Quarter: 2020Q2

REPORT INFORMATION
  Report Type: Spontaneous
  Country: RO (occurrence: RO)
  Receive Date: 20200504
  Receipt Date: 20200526
  Transmission Date: 20200714
  Serious: Yes (Hospitalization, Disabling, Other)
  Sender: FDA-Public Use
  Company Number: RO-OTSUKA-2020_010418

PATIENT
  Age: 61 Year
  Sex: Male

DRUGS (21)
  1. DONEPEZIL. [Suspect]
     Active Substance: DONEPEZIL
     Indication: FRONTOTEMPORAL DEMENTIA
     Dosage: 10 MG, QD
     Route: 065
     Dates: start: 2018
  2. MEMANTINE. [Suspect]
     Active Substance: MEMANTINE
     Indication: MAJOR DEPRESSION
  3. SODIUM VALPROATE [Suspect]
     Active Substance: VALPROATE SODIUM
     Indication: DEMENTIA
     Dosage: 1000 MG, QD
     Route: 065
     Dates: start: 2018
  4. TRAZODONE [Suspect]
     Active Substance: TRAZODONE HYDROCHLORIDE
     Indication: PERSONALITY CHANGE
  5. TRAZODONE [Suspect]
     Active Substance: TRAZODONE HYDROCHLORIDE
     Indication: MAJOR DEPRESSION
  6. ABILIFY [Suspect]
     Active Substance: ARIPIPRAZOLE
     Indication: DISEASE PROGRESSION
  7. MEMANTINE. [Suspect]
     Active Substance: MEMANTINE
     Indication: FRONTOTEMPORAL DEMENTIA
  8. ABILIFY [Suspect]
     Active Substance: ARIPIPRAZOLE
     Indication: MAJOR DEPRESSION
     Dosage: 7 MG, QD
     Route: 048
     Dates: start: 20191107, end: 20191112
  9. DONEPEZIL. [Suspect]
     Active Substance: DONEPEZIL
     Indication: DEMENTIA
  10. MIRTAZAPINE. [Suspect]
     Active Substance: MIRTAZAPINE
     Indication: DEMENTIA
     Dosage: 15 MG, QD
     Route: 065
  11. ARIPIPRAZOLE. [Suspect]
     Active Substance: ARIPIPRAZOLE
     Indication: MAJOR DEPRESSION
     Dosage: 10 MG, QD
     Route: 048
     Dates: start: 20191107
  12. ARIPIPRAZOLE. [Suspect]
     Active Substance: ARIPIPRAZOLE
     Dosage: UNK (1MG/ML)
     Route: 048
  13. DONEPEZIL. [Suspect]
     Active Substance: DONEPEZIL
     Indication: PERSONALITY CHANGE
  14. TRAZODONE [Suspect]
     Active Substance: TRAZODONE HYDROCHLORIDE
     Indication: DEMENTIA
     Dosage: 100 MG, QD
     Route: 065
  15. CLONAZEPAM. [Concomitant]
     Active Substance: CLONAZEPAM
     Indication: MAJOR DEPRESSION
     Dosage: 1 MG, QD
     Route: 065
  16. DONEPEZIL. [Suspect]
     Active Substance: DONEPEZIL
     Indication: MAJOR DEPRESSION
  17. MEMANTINE. [Suspect]
     Active Substance: MEMANTINE
     Indication: PERSONALITY CHANGE
  18. ARIPIPRAZOLE. [Suspect]
     Active Substance: ARIPIPRAZOLE
     Indication: ABNORMAL BEHAVIOUR
     Dosage: 7 MG, QD
     Route: 048
  19. ARIPIPRAZOLE. [Suspect]
     Active Substance: ARIPIPRAZOLE
     Dosage: UNK
     Route: 065
  20. MEMANTINE. [Suspect]
     Active Substance: MEMANTINE
     Indication: DEMENTIA
     Dosage: 20 MG, QD
     Route: 065
     Dates: start: 2018
  21. ESCITALOPRAM [Concomitant]
     Active Substance: ESCITALOPRAM OXALATE
     Indication: MAJOR DEPRESSION
     Dosage: 10 MG, QD
     Route: 065

REACTIONS (12)
  - Product use in unapproved indication [Unknown]
  - Hyperhidrosis [Recovered/Resolved]
  - Drug ineffective [Unknown]
  - Neuroleptic malignant syndrome [Recovered/Resolved]
  - Loss of personal independence in daily activities [Unknown]
  - Pyrexia [Recovered/Resolved]
  - Treatment failure [Unknown]
  - Condition aggravated [Recovering/Resolving]
  - Dementia [Recovering/Resolving]
  - Cogwheel rigidity [Recovered/Resolved]
  - Tremor [Recovered/Resolved]
  - Disinhibition [Unknown]

NARRATIVE: CASE EVENT DATE: 2019
